FAERS Safety Report 11262192 (Version 2)
Quarter: 2015Q3

REPORT INFORMATION
  Report Type: Spontaneous
  Country: US (occurrence: US)
  Receive Date: 20150710
  Receipt Date: 20150826
  Transmission Date: 20151125
  Serious: No
  Sender: FDA-Public Use
  Company Number: US-GLAXOSMITHKLINE-US2015091292

PATIENT
  Age: 71 Year
  Sex: Female

DRUGS (5)
  1. VENTOLIN HFA [Suspect]
     Active Substance: ALBUTEROL SULFATE
     Indication: CHRONIC OBSTRUCTIVE PULMONARY DISEASE
     Dosage: 2 PUFF(S), PRN
     Route: 055
     Dates: start: 2013
  2. VENTOLIN HFA [Suspect]
     Active Substance: ALBUTEROL SULFATE
     Dosage: UNK
  3. BUDESONIDE. [Concomitant]
     Active Substance: BUDESONIDE
  4. OXYGEN. [Concomitant]
     Active Substance: OXYGEN
  5. ALBUTEROL WITH NEBULIZER [Concomitant]

REACTIONS (4)
  - Device use error [Unknown]
  - Drug ineffective [Recovering/Resolving]
  - Product quality issue [Unknown]
  - Expired product administered [Unknown]

NARRATIVE: CASE EVENT DATE: 20150624
